FAERS Safety Report 16681895 (Version 1)
Quarter: 2019Q3

REPORT INFORMATION
  Report Type: Spontaneous
  Country: US (occurrence: US)
  Receive Date: 20190808
  Receipt Date: 20190808
  Transmission Date: 20191004
  Serious: Yes (Hospitalization)
  Sender: FDA-Public Use
  Company Number: US-KARYOPHARM THERAPEUTICS, INC.-2019KPT000354

PATIENT

DRUGS (1)
  1. XPOVIO [Suspect]
     Active Substance: SELINEXOR
     Indication: PLASMA CELL MYELOMA
     Dosage: 20 MG, 2X/WEEKLY (ON DAYS 1 AND 3 EACH WEEK)
     Route: 048
     Dates: start: 201907

REACTIONS (3)
  - Pain [Unknown]
  - Fluid overload [Unknown]
  - Pulmonary embolism [Unknown]
